FAERS Safety Report 16076706 (Version 2)
Quarter: 2019Q4

REPORT INFORMATION
  Report Type: Spontaneous
  Country: CA (occurrence: CA)
  Receive Date: 20190315
  Receipt Date: 20191126
  Transmission Date: 20200122
  Serious: Yes (Hospitalization, Other)
  Sender: FDA-Public Use
  Company Number: CA-AUROBINDO-AUR-APL-2019-013651

PATIENT
  Age: 78 Year
  Sex: Male

DRUGS (2)
  1. GABAPENTIN. [Suspect]
     Active Substance: GABAPENTIN
     Indication: PRODUCT USED FOR UNKNOWN INDICATION
     Dosage: 300 MILLIGRAM,3 EVERY 1 DAY(S)
     Route: 048
  2. GABAPENTIN. [Suspect]
     Active Substance: GABAPENTIN
     Dosage: 400 MILLIGRAM, 3 TIMES A DAY
     Route: 048

REACTIONS (2)
  - Delirium [Recovering/Resolving]
  - Confusional state [Recovering/Resolving]
